FAERS Safety Report 7201465-2 (Version None)
Quarter: 2010Q4

REPORT INFORMATION
  Report Type: 
  Country: None (occurrence: None)
  Receive Date: 20101229
  Receipt Date: 20101220
  Transmission Date: 20110411
  Serious: Yes (Hospitalization)
  Sender: FDA-Public Use
  Company Number: JP-CEPHALON-2010006593

PATIENT
  Age: 77 Year
  Sex: Female

DRUGS (7)
  1. TREANDA [Suspect]
     Indication: MANTLE CELL LYMPHOMA
     Route: 042
     Dates: start: 20101214, end: 20101215
  2. GRANISETRON HYDROCHLORIDE [Concomitant]
  3. SULFAMETHOXAZOLE AND TRIMETHOPRIM [Concomitant]
  4. FLUCONAZOLE [Concomitant]
  5. PREDNISOLONE [Concomitant]
  6. CEFEPIME HYDROCHLORIDE [Concomitant]
  7. SULFAMETHOXAZOLE AND TRIMETHOPRIM [Concomitant]
     Dates: start: 20101214

REACTIONS (2)
  - BONE MARROW FAILURE [None]
  - STOMATITIS [None]
